FAERS Safety Report 15097609 (Version 9)
Quarter: 2019Q3

REPORT INFORMATION
  Report Type: Report from Study
  Country: DE (occurrence: DE)
  Receive Date: 20180702
  Receipt Date: 20190909
  Transmission Date: 20191004
  Serious: Yes (Death, Life-Threatening, Hospitalization, Other)
  Sender: FDA-Public Use
  Company Number: DE-BRISTOL-MYERS SQUIBB COMPANY-BMS-2018-044384

PATIENT
  Age: 53 Year
  Sex: Male

DRUGS (10)
  1. OXYCODON [Concomitant]
     Active Substance: OXYCODONE
     Indication: MALIGNANT NEOPLASM PROGRESSION
     Dosage: 10 MG, PRN
     Route: 065
     Dates: start: 20180507, end: 20180602
  2. NIVOLUMAB [Suspect]
     Active Substance: NIVOLUMAB
     Indication: NON-SMALL CELL LUNG CANCER
     Dosage: 3 MG/KG, Q2WK
     Route: 042
     Dates: start: 20180326, end: 20180507
  3. CALCIUM D3 [Concomitant]
     Active Substance: CALCIUM\CHOLECALCIFEROL
     Indication: PROPHYLAXIS
     Dosage: 1000 MG, QD
     Route: 065
     Dates: start: 20180108, end: 20180602
  4. NOVALGIN (METAMIZOLE SODIUM) [Concomitant]
     Active Substance: METAMIZOLE SODIUM
     Indication: MALIGNANT NEOPLASM PROGRESSION
     Dosage: 500 MG, TID
     Route: 065
     Dates: start: 20180409, end: 20180502
  5. NOVALGIN (METAMIZOLE SODIUM) [Concomitant]
     Active Substance: METAMIZOLE SODIUM
     Indication: PRODUCT USED FOR UNKNOWN INDICATION
     Dosage: 1000 MG, QID
     Route: 065
     Dates: start: 20180502, end: 20180602
  6. TARGIN [Concomitant]
     Active Substance: NALOXONE HYDROCHLORIDE\OXYCODONE HYDROCHLORIDE
     Indication: MALIGNANT NEOPLASM PROGRESSION
     Dosage: 100 MG, BID
     Route: 065
     Dates: start: 20180409, end: 20180602
  7. OXYGESIC [Concomitant]
     Active Substance: OXYCODONE
     Indication: MALIGNANT NEOPLASM PROGRESSION
     Dosage: PRN, UP TO 4X 5 MG DAILY
     Route: 065
     Dates: start: 20180409, end: 20180602
  8. VOLTAREN [Concomitant]
     Active Substance: DICLOFENAC SODIUM
     Indication: MALIGNANT NEOPLASM PROGRESSION
     Dosage: UNK, QD
     Route: 065
     Dates: start: 201712, end: 20180502
  9. VERSATIS [Concomitant]
     Active Substance: LIDOCAINE
     Indication: MALIGNANT NEOPLASM PROGRESSION
     Dosage: PRN ,MAX 1 PATCH DAILY
     Route: 065
     Dates: start: 20180502, end: 20180602
  10. PANTOPRAZOL                        /01263201/ [Concomitant]
     Active Substance: PANTOPRAZOLE
     Indication: PROPHYLAXIS
     Dosage: 20 MG, QD
     Route: 065
     Dates: start: 201712, end: 20180602

REACTIONS (8)
  - Pulmonary sepsis [Fatal]
  - Deep vein thrombosis [Not Recovered/Not Resolved]
  - Circulatory collapse [Fatal]
  - Nausea [Recovered/Resolved]
  - Malignant neoplasm progression [Not Recovered/Not Resolved]
  - Chest pain [Recovering/Resolving]
  - Cerebrovascular accident [Not Recovered/Not Resolved]
  - Back pain [Recovering/Resolving]

NARRATIVE: CASE EVENT DATE: 20180409
